FAERS Safety Report 21395804 (Version 2)
Quarter: 2022Q4

REPORT INFORMATION
  Report Type: Report from Study
  Country: CN (occurrence: CN)
  Receive Date: 20220930
  Receipt Date: 20221018
  Transmission Date: 20230113
  Serious: Yes (Hospitalization, Disabling, Other)
  Sender: FDA-Public Use
  Company Number: CN-BRISTOL-MYERS SQUIBB COMPANY-2022-088089

PATIENT
  Age: 79 Year
  Sex: Female

DRUGS (2)
  1. OPDIVO [Suspect]
     Active Substance: NIVOLUMAB
     Indication: Squamous cell carcinoma of head and neck
     Dosage: Q 3 WEEKS
     Route: 041
     Dates: start: 20220127
  2. OPDIVO [Suspect]
     Active Substance: NIVOLUMAB
     Dosage: Q3W
     Route: 041
     Dates: start: 20220608

REACTIONS (7)
  - Oral infection [Unknown]
  - Neoplasm recurrence [Unknown]
  - Malignant neoplasm progression [Unknown]
  - Erythema [Unknown]
  - Mouth haemorrhage [Unknown]
  - Off label use [Unknown]
  - Perforation [Unknown]

NARRATIVE: CASE EVENT DATE: 20220926
